FAERS Safety Report 24623680 (Version 1)
Quarter: 2024Q4

REPORT INFORMATION
  Report Type: Spontaneous
  Country: US (occurrence: US)
  Receive Date: 20241115
  Receipt Date: 20241115
  Transmission Date: 20250115
  Serious: No
  Sender: AMICUS THERAPEUTICS
  Company Number: US-AMICUS THERAPEUTICS, INC.-AMI_3020

PATIENT
  Age: 4 Decade
  Sex: Female

DRUGS (2)
  1. POMBILITI [Suspect]
     Active Substance: CIPAGLUCOSIDASE ALFA-ATGA
     Indication: Product used for unknown indication
     Dosage: UNK
     Route: 042
  2. OPFOLDA [Suspect]
     Active Substance: MIGLUSTAT
     Indication: Product used for unknown indication
     Dosage: UNK
     Route: 048

REACTIONS (1)
  - COVID-19 [Not Recovered/Not Resolved]
